FAERS Safety Report 19566946 (Version 1)
Quarter: 2021Q3

REPORT INFORMATION
  Report Type: Spontaneous
  Country: US (occurrence: US)
  Receive Date: 20210714
  Receipt Date: 20210714
  Transmission Date: 20211014
  Serious: Yes (Other)
  Sender: FDA-Public Use
  Company Number: US-SA-2021SA224924

PATIENT
  Sex: Female

DRUGS (2)
  1. ENOXAPARIN SODIUM ? WINTHROP [Suspect]
     Active Substance: ENOXAPARIN SODIUM
     Dosage: PREFILLED SYRINGE; DRUG STRUCTURE DOSAGE : 80 MG DRUG INTERVAL DOSAGE : Q 12 H DRUG TREATMENT DURATI
  2. ENOXAPARIN SODIUM ? WINTHROP [Suspect]
     Active Substance: ENOXAPARIN SODIUM
     Indication: PULMONARY EMBOLISM
     Dosage: 100 MG, QD

REACTIONS (6)
  - Haematoma [Not Recovered/Not Resolved]
  - Exercise lack of [Not Recovered/Not Resolved]
  - Exposure to SARS-CoV-2 [Not Recovered/Not Resolved]
  - Thrombosis [Not Recovered/Not Resolved]
  - Haemoglobin decreased [Not Recovered/Not Resolved]
  - Multiple fractures [Not Recovered/Not Resolved]
